FAERS Safety Report 4513044-6 (Version None)
Quarter: 2004Q4

REPORT INFORMATION
  Report Type: 
  Country: None (occurrence: None)
  Receive Date: 20041124
  Receipt Date: 20041124
  Transmission Date: 20050328
  Serious: Yes (Death, Life-Threatening, Hospitalization)
  Sender: FDA-Public Use
  Company Number: None

PATIENT
  Age: 66 Year
  Sex: Male
  Weight: 96 kg

DRUGS (1)
  1. ADALIMUMAB [Suspect]
     Dosage: 40 MG SQ EVERY OTHER WEEK
     Route: 058
     Dates: start: 20030821, end: 20031020

REACTIONS (1)
  - PNEUMONIA [None]
